FAERS Safety Report 10200751 (Version 2)
Quarter: 2014Q2

REPORT INFORMATION
  Report Type: Spontaneous
  Country: US (occurrence: US)
  Receive Date: 20140528
  Receipt Date: 20140608
  Transmission Date: 20141212
  Serious: Yes (Other)
  Sender: FDA-Public Use
  Company Number: US-009507513-1405USA013891

PATIENT
  Age: 40 Year
  Sex: Male

DRUGS (5)
  1. VICTRELIS [Suspect]
     Indication: HEPATITIS C
     Dosage: UNK
     Route: 048
  2. REBETOL [Suspect]
     Indication: HEPATITIS C
     Dosage: UNK
     Route: 048
  3. REBETOL [Suspect]
     Dosage: UNK
     Route: 048
  4. PEGINTRON [Suspect]
     Indication: HEPATITIS C
     Dosage: UNK
     Route: 058
  5. PEGINTRON [Suspect]
     Dosage: UNK
     Route: 058

REACTIONS (4)
  - Transfusion [Recovered/Resolved]
  - Anaemia [Recovered/Resolved]
  - Treatment failure [Unknown]
  - Neutropenia [Recovered/Resolved]
